FAERS Safety Report 11147989 (Version 1)
Quarter: 2015Q2

REPORT INFORMATION
  Report Type: Spontaneous
  Country: DE (occurrence: DE)
  Receive Date: 20150529
  Receipt Date: 20150529
  Transmission Date: 20150821
  Serious: Yes (Other)
  Sender: FDA-Public Use
  Company Number: DE-SUN PHARMACEUTICAL INDUSTRIES LTD-2015RR-97694

PATIENT

DRUGS (1)
  1. CEFUROX BASICS 500 MG TABLETTEN [Suspect]
     Active Substance: CEFUROXIME
     Indication: PRODUCT USED FOR UNKNOWN INDICATION
     Dosage: 10000 MG TOTAL, 20 TABLETS
     Route: 048

REACTIONS (5)
  - Arthropathy [Unknown]
  - Paraesthesia [Unknown]
  - Monoplegia [Unknown]
  - Tremor [Unknown]
  - Pain in extremity [Unknown]
